FAERS Safety Report 25258771 (Version 3)
Quarter: 2025Q3

REPORT INFORMATION
  Report Type: Report from Study
  Country: GB (occurrence: GB)
  Receive Date: 20250501
  Receipt Date: 20250803
  Transmission Date: 20251021
  Serious: Yes (Hospitalization)
  Sender: ABBVIE
  Company Number: GB-ABBVIE-6257120

PATIENT
  Sex: Female

DRUGS (2)
  1. FOSCARBIDOPA\FOSLEVODOPA [Suspect]
     Active Substance: FOSCARBIDOPA\FOSLEVODOPA
     Indication: Parkinson^s disease
     Route: 058
  2. ROPINIROLE [Concomitant]
     Active Substance: ROPINIROLE
     Indication: Product used for unknown indication

REACTIONS (10)
  - Urinary tract infection [Unknown]
  - Parkinson^s disease [Unknown]
  - Diarrhoea [Unknown]
  - Dizziness [Unknown]
  - Balance disorder [Unknown]
  - Catheter site erythema [Recovering/Resolving]
  - Palpitations [Unknown]
  - Discomfort [Unknown]
  - Mobility decreased [Unknown]
  - Memory impairment [Unknown]
